FAERS Safety Report 6430298-X (Version None)
Quarter: 2009Q4

REPORT INFORMATION
  Report Type: 
  Country: None (occurrence: None)
  Receive Date: 20091106
  Receipt Date: 20091104
  Transmission Date: 20100525
  Serious: Yes (Life-Threatening)
  Sender: FDA-Public Use
  Company Number: JP-ASTRAZENECA-2009SE24531

PATIENT
  Age: 89 Year
  Sex: Female
  Weight: 45 kg

DRUGS (5)
  1. ANAPEINE INJECTION 7.5MG/ML [Suspect]
     Indication: EPIDURAL ANAESTHESIA
     Dosage: DILUTED WITH TWENTY THOUSAND-FOLD EPINEPHRINE
     Route: 008
  2. DIPRIVAN [Suspect]
     Indication: INDUCTION OF ANAESTHESIA
     Route: 042
  3. HALOPERIDOL [Suspect]
     Indication: DEMENTIA
     Dosage: DOSE UNKNOWN, INTERMITTENTLY ADMINISTERED.
     Route: 065
  4. SEVOFLURANE [Suspect]
     Indication: INDUCTION OF ANAESTHESIA
     Route: 055
  5. FENTANYL CITRATE [Concomitant]
     Route: 042

REACTIONS (1)
  - TORSADE DE POINTES [None]
